FAERS Safety Report 8984421 (Version 3)
Quarter: 2013Q1

REPORT INFORMATION
  Report Type: Report from Study
  Country: JP (occurrence: JP)
  Receive Date: 20121226
  Receipt Date: 20130114
  Transmission Date: 20140127
  Serious: Yes (Other)
  Sender: FDA-Public Use
  Company Number: JP-PFIZER INC-2012087812

PATIENT
  Age: 38 Year
  Sex: Female
  Weight: 77.9 kg

DRUGS (5)
  1. SOMAVERT [Suspect]
     Indication: ACROMEGALY
     Dosage: 40 MG, 1X/DAY
     Route: 058
     Dates: start: 20120119, end: 20120119
  2. SOMAVERT [Suspect]
     Dosage: 10 MG, 1X/DAY
     Route: 058
     Dates: start: 20120120, end: 20120405
  3. PARLODEL [Concomitant]
     Indication: ACROMEGALY
     Dosage: 2.5 MG, 1X/DAY
     Route: 048
     Dates: start: 20120406
  4. MIGSIS [Concomitant]
     Dosage: UNK MG, 1X/DAY
     Route: 048
  5. DEPAKENE [Concomitant]
     Dosage: UNK
     Route: 048

REACTIONS (1)
  - Liver disorder [Recovered/Resolved]
